FAERS Safety Report 19548325 (Version 3)
Quarter: 2021Q3

REPORT INFORMATION
  Report Type: Spontaneous
  Country: US (occurrence: US)
  Receive Date: 20210714
  Receipt Date: 20210721
  Transmission Date: 20211014
  Serious: No
  Sender: FDA-Public Use
  Company Number: NVSC2021US157451

PATIENT
  Sex: Female

DRUGS (1)
  1. PATADAY [Suspect]
     Active Substance: OLOPATADINE HYDROCHLORIDE
     Indication: PRODUCT USED FOR UNKNOWN INDICATION
     Dosage: UNK, BID
     Route: 065

REACTIONS (4)
  - Eye swelling [Recovering/Resolving]
  - Eye irritation [Recovered/Resolved]
  - Hordeolum [Not Recovered/Not Resolved]
  - Eye pain [Recovering/Resolving]

NARRATIVE: CASE EVENT DATE: 20210702
